FAERS Safety Report 21014982 (Version 1)
Quarter: 2022Q2

REPORT INFORMATION
  Report Type: Spontaneous
  Country: HU (occurrence: HU)
  Receive Date: 20220628
  Receipt Date: 20220628
  Transmission Date: 20220721
  Serious: Yes (Hospitalization)
  Sender: FDA-Public Use
  Company Number: None

PATIENT
  Age: 73 Year
  Sex: Male
  Weight: 72 kg

DRUGS (10)
  1. ONTRUZANT [Suspect]
     Active Substance: TRASTUZUMAB-DTTB
     Indication: Adenocarcinoma of colon
     Dosage: TOTAL, NEXT DOSE ON13-MAY-2022
     Route: 042
     Dates: start: 20220422
  2. PERJETA [Suspect]
     Active Substance: PERTUZUMAB
     Indication: Adenocarcinoma of colon
     Dosage: TOTAL
     Route: 042
     Dates: start: 20220121
  3. PERJETA [Suspect]
     Active Substance: PERTUZUMAB
     Dosage: TOTAL
     Route: 042
     Dates: start: 20220211
  4. PERJETA [Suspect]
     Active Substance: PERTUZUMAB
     Dosage: TOTAL
     Route: 042
     Dates: start: 20220304, end: 20220325
  5. PERJETA [Suspect]
     Active Substance: PERTUZUMAB
     Dosage: TOTAL, NEXT DOSE ON 13-MAY-2022
     Route: 042
     Dates: start: 20220422
  6. DELIPID PLUS [Concomitant]
     Indication: Product used for unknown indication
     Dosage: UNKNOWN
     Route: 065
  7. CARDILOPIN [Concomitant]
     Indication: Product used for unknown indication
     Dosage: UNKNOWN
     Route: 065
  8. ESOMEPRAZOLE [Concomitant]
     Active Substance: ESOMEPRAZOLE
     Indication: Product used for unknown indication
     Dosage: UNKNOWN
     Route: 065
  9. TAMSULOSIN [Concomitant]
     Active Substance: TAMSULOSIN
     Indication: Product used for unknown indication
     Dosage: UNKNOWN
     Route: 065
  10. CLOPIDOGREL [Concomitant]
     Active Substance: CLOPIDOGREL BISULFATE
     Indication: Product used for unknown indication
     Dosage: UNKNOWN
     Route: 065

REACTIONS (4)
  - Eye oedema [Not Recovered/Not Resolved]
  - Swelling face [Not Recovered/Not Resolved]
  - Face oedema [Not Recovered/Not Resolved]
  - Off label use [Unknown]

NARRATIVE: CASE EVENT DATE: 20220513
